FAERS Safety Report 4854143-9 (Version None)
Quarter: 2005Q4

REPORT INFORMATION
  Report Type: 
  Country: None (occurrence: None)
  Receive Date: 20051125
  Receipt Date: 20050601
  Transmission Date: 20060501
  Serious: Yes (Life-Threatening, Disabling)
  Sender: FDA-Public Use
  Company Number: US-JNJFOC-20050500789

PATIENT
  Age: 66 Year
  Sex: Male
  Weight: 104.3273 kg

DRUGS (4)
  1. LEVAQUIN [Suspect]
     Indication: SINUSITIS BACTERIAL
     Dosage: 500 MG, 1 IN 1 DAY
     Dates: start: 20000424
  2. LEVAQUIN [Suspect]
     Indication: SINUSITIS BACTERIAL
     Dosage: 750 MG, ORAL
     Route: 048
     Dates: start: 20030101
  3. CIPRO [Suspect]
     Indication: SINUSITIS BACTERIAL
     Dosage: 750 MG, 2 IN 1 DAY
     Dates: start: 20010820
  4. PREDNISONE TAB [Concomitant]

REACTIONS (1)
  - POLYNEUROPATHY [None]
